FAERS Safety Report 16907479 (Version 1)
Quarter: 2019Q4

REPORT INFORMATION
  Report Type: Report from Study
  Country: None (occurrence: US)
  Receive Date: 20191011
  Receipt Date: 20191011
  Transmission Date: 20200122
  Serious: Yes (Hospitalization, Other)
  Sender: FDA-Public Use
  Company Number: US-ABBVIE-19K-163-2955240-00

PATIENT
  Age: 66 Year
  Sex: Male

DRUGS (1)
  1. CREON [Suspect]
     Active Substance: PANCRELIPASE AMYLASE\PANCRELIPASE LIPASE\PANCRELIPASE PROTEASE
     Indication: PRODUCT USED FOR UNKNOWN INDICATION
     Route: 048

REACTIONS (10)
  - Pancreatitis chronic [Unknown]
  - Fatigue [Unknown]
  - Cholecystectomy [Unknown]
  - Barrett^s oesophagus [Unknown]
  - Oesophagogastroduodenoscopy [Not Recovered/Not Resolved]
  - Nausea [Unknown]
  - Vomiting [Unknown]
  - Hospitalisation [Unknown]
  - Weight decreased [Unknown]
  - Polyp [Unknown]

NARRATIVE: CASE EVENT DATE: 20150331
